FAERS Safety Report 9475562 (Version 2)
Quarter: 2014Q2

REPORT INFORMATION
  Report Type: Report from Study
  Country: GB (occurrence: GB)
  Receive Date: 20130826
  Receipt Date: 20140428
  Transmission Date: 20141212
  Serious: Yes (Other)
  Sender: FDA-Public Use
  Company Number: GB-ROCHE-1265898

PATIENT
  Age: 70 Year
  Sex: Female

DRUGS (6)
  1. RANIBIZUMAB [Suspect]
     Indication: PRODUCT USED FOR UNKNOWN INDICATION
     Dosage: LAST DOSE PRIOR TO SAE WAS TAKEN ON 18 DEC 2012,
     Route: 050
     Dates: start: 20121022
  2. RANIBIZUMAB [Suspect]
     Route: 050
     Dates: start: 20121218
  3. ATORVASTATIN [Concomitant]
  4. FUROSEMIDE [Concomitant]
  5. HYDROXOCOBALAMIN [Concomitant]
  6. RAMIPRIL [Concomitant]

REACTIONS (2)
  - Aortic stenosis [Unknown]
  - Syncope [Recovered/Resolved]
